FAERS Safety Report 4804067-8 (Version None)
Quarter: 2005Q4

REPORT INFORMATION
  Report Type: 
  Country: None (occurrence: None)
  Receive Date: 20051014
  Receipt Date: 20050922
  Transmission Date: 20060501
  Serious: Yes (Death, Other)
  Sender: FDA-Public Use
  Company Number: 2005BH001959

PATIENT

DRUGS (1)
  1. HEPARIN SODIUM [Suspect]
     Indication: DRUG USE FOR UNKNOWN INDICATION
     Dosage: 250 ML;IVBOL
     Route: 040
     Dates: start: 20050801

REACTIONS (7)
  - ANGIOPATHY [None]
  - CARDIO-RESPIRATORY ARREST [None]
  - DEVICE FAILURE [None]
  - DISSEMINATED INTRAVASCULAR COAGULATION [None]
  - MOUTH HAEMORRHAGE [None]
  - OVERDOSE [None]
  - SUBDURAL HAEMATOMA [None]
